FAERS Safety Report 5940640-1 (Version None)
Quarter: 2008Q4

REPORT INFORMATION
  Report Type: 
  Country: None (occurrence: None)
  Receive Date: 20081030
  Receipt Date: 20081022
  Transmission Date: 20090506
  Serious: Yes (Death)
  Sender: FDA-Public Use
  Company Number: GXKR2008GB10103

PATIENT
  Age: 55 Year
  Sex: Female

DRUGS (11)
  1. ACETYLSALICYLIC ACID SRT [Suspect]
     Dosage: 75 MG,  ORAL
     Route: 048
     Dates: start: 20081006, end: 20081014
  2. CLOPIDOGREL [Suspect]
     Indication: ACUTE CORONARY SYNDROME
     Dosage: ORAL
     Route: 048
     Dates: start: 20081012, end: 20081014
  3. ENOXAPARIN SODIUM [Suspect]
     Indication: ACUTE CORONARY SYNDROME
     Dosage: 60 MG,  ORAL
     Route: 048
     Dates: start: 20081012, end: 20081014
  4. ATORVASTATIN CALCIUM [Concomitant]
  5. AZATHIOPRINE [Concomitant]
  6. BISOPROLOL FUMARATE [Concomitant]
  7. CLARITHROMYCIN [Concomitant]
  8. HYDROCORTISONE [Concomitant]
  9. LANSOPRAZOLE [Concomitant]
  10. SALBUTAMOL (SALBUTAMOL) [Concomitant]
  11. PIPERACILLIN SODIUM AND TAZOBACTAM SODIUM [Concomitant]

REACTIONS (3)
  - BRAIN OEDEMA [None]
  - DIABETES INSIPIDUS [None]
  - HAEMORRHAGE INTRACRANIAL [None]
